FAERS Safety Report 7721264-2 (Version None)
Quarter: 2011Q3

REPORT INFORMATION
  Report Type: 
  Country: None (occurrence: None)
  Receive Date: 20110831
  Receipt Date: 20110819
  Transmission Date: 20111222
  Serious: Yes (Other)
  Sender: FDA-Public Use
  Company Number: MX-UCBSA-039649

PATIENT
  Sex: Male

DRUGS (2)
  1. NUBRENZA [Suspect]
     Route: 062
     Dates: start: 20110815, end: 20110817
  2. NUBRENZA [Suspect]
     Indication: PARKINSON'S DISEASE
     Dosage: ??/JUN/2011-??/JUN/2011 2MG DURING 7DAYS; ??/???/2011-??/AUG/2011 4MG FOR 28DAYS;DOSE INCREASED 6MG
     Route: 062
     Dates: start: 20110101, end: 20110801

REACTIONS (2)
  - ABNORMAL BEHAVIOUR [None]
  - HALLUCINATION [None]
